FAERS Safety Report 5282051-0 (Version None)
Quarter: 2007Q1

REPORT INFORMATION
  Report Type: 
  Country: None (occurrence: None)
  Receive Date: 20070330
  Receipt Date: 20070321
  Transmission Date: 20070707
  Serious: Yes (Life-Threatening)
  Sender: FDA-Public Use
  Company Number: US-MERCK-0703USA04273

PATIENT
  Age: 65 Year
  Sex: Male

DRUGS (2)
  1. CANCIDAS [Suspect]
     Route: 042
     Dates: start: 20070305
  2. ANTIMICROBIAL (UNSPECIFIED) [Concomitant]
     Route: 065

REACTIONS (1)
  - ORAL CANDIDIASIS [None]
